FAERS Safety Report 12946338 (Version 1)
Quarter: 2016Q4

REPORT INFORMATION
  Report Type: Spontaneous
  Country: US (occurrence: US)
  Receive Date: 20161115
  Receipt Date: 20161115
  Transmission Date: 20170207
  Serious: No
  Sender: FDA-Public Use
  Company Number: US-009507513-1611USA005158

PATIENT
  Age: 58 Year
  Sex: Male

DRUGS (6)
  1. ZOLINZA [Suspect]
     Active Substance: VORINOSTAT
     Indication: FUNGAL INFECTION
     Dosage: 2 CAPSULES DAILY FOR ONE WEEK, 3 CAPSULES DAILY FOR ONE WEEK, 4 CAPSULES DAILY THEREAFTER
     Route: 048
     Dates: start: 20161108
  2. TYLENOL [Concomitant]
     Active Substance: ACETAMINOPHEN
  3. METFORMIN HYDROCHLORIDE. [Concomitant]
     Active Substance: METFORMIN HYDROCHLORIDE
  4. PRINIVIL [Concomitant]
     Active Substance: LISINOPRIL
  5. ASPIRIN. [Concomitant]
     Active Substance: ASPIRIN
  6. CELEBREX [Concomitant]
     Active Substance: CELECOXIB

REACTIONS (2)
  - Dry mouth [Unknown]
  - Thirst [Unknown]

NARRATIVE: CASE EVENT DATE: 201611
